FAERS Safety Report 9378077 (Version 1)
Quarter: 2013Q3

REPORT INFORMATION
  Report Type: Report from Study
  Country: US (occurrence: US)
  Receive Date: 20130701
  Receipt Date: 20130701
  Transmission Date: 20140515
  Serious: Yes (Hospitalization)
  Sender: FDA-Public Use
  Company Number: US-GLAXOSMITHKLINE-A1028890A

PATIENT
  Age: 30 Year
  Sex: Female
  Weight: 74 kg

DRUGS (8)
  1. RETIGABINE [Suspect]
     Indication: EPILEPSY
     Dosage: 400MG THREE TIMES PER DAY
     Route: 048
     Dates: start: 20130319, end: 20130329
  2. DIAZEPAM [Suspect]
     Indication: CONVULSION
     Route: 030
     Dates: start: 20121119
  3. PREGABALIN [Suspect]
     Indication: EPILEPSY
     Dosage: 300MG TWICE PER DAY
     Route: 048
     Dates: start: 20111214
  4. LEVETIRACETAM [Suspect]
     Indication: EPILEPSY
     Dosage: 1500MG TWICE PER DAY
     Route: 048
     Dates: start: 20070410
  5. LAMOTRIGINE [Suspect]
     Indication: EPILEPSY
     Dosage: 200MG THREE TIMES PER DAY
     Route: 048
     Dates: start: 20081130
  6. LORAZEPAM [Suspect]
     Indication: EPILEPSY
     Dosage: 2MG AT NIGHT
     Route: 048
     Dates: start: 20110920
  7. CLARITIN [Concomitant]
     Indication: SEASONAL ALLERGY
     Dosage: 10MG PER DAY
     Route: 048
     Dates: start: 20070410
  8. MULTIVITAMIN [Concomitant]
     Indication: SUPPLEMENTATION THERAPY
     Dosage: 1TAB PER DAY
     Route: 048
     Dates: start: 200604

REACTIONS (2)
  - Toxicity to various agents [Recovered/Resolved]
  - Accidental overdose [Recovered/Resolved]
